FAERS Safety Report 6495755-9 (Version None)
Quarter: 2009Q4

REPORT INFORMATION
  Report Type: 
  Country: None (occurrence: None)
  Receive Date: 20091214
  Receipt Date: 20090807
  Transmission Date: 20100525
  Serious: No
  Sender: FDA-Public Use
  Company Number: US-BRISTOL-MYERS SQUIBB COMPANY-14733760

PATIENT
  Age: 48 Year
  Sex: Female

DRUGS (3)
  1. ABILIFY [Suspect]
     Dosage: DOSE REDUCED TO 15MG
  2. EFFEXOR [Concomitant]
  3. CYMBALTA [Concomitant]

REACTIONS (2)
  - DYSKINESIA [None]
  - TARDIVE DYSKINESIA [None]
